FAERS Safety Report 6148620-0 (Version None)
Quarter: 2009Q2

REPORT INFORMATION
  Report Type: 
  Country: None (occurrence: None)
  Receive Date: 20090406
  Receipt Date: 20090406
  Transmission Date: 20091009
  Serious: No
  Sender: FDA-Public Use
  Company Number: None

PATIENT
  Age: 50 Year
  Sex: Female
  Weight: 74.8435 kg

DRUGS (1)
  1. FLAGYL [Suspect]
     Indication: TOOTH ABSCESS
     Dosage: 1 TABLET EVERY 8 HOURS PO
     Route: 048
     Dates: start: 20090326, end: 20090402

REACTIONS (3)
  - HEADACHE [None]
  - NAUSEA [None]
  - TOOTHACHE [None]
